FAERS Safety Report 8544301-4 (Version None)
Quarter: 2012Q3

REPORT INFORMATION
  Report Type: 
  Country: None (occurrence: None)
  Receive Date: 20120719
  Receipt Date: 20120719
  Transmission Date: 20120928
  Serious: Yes (Other)
  Sender: FDA-Public Use
  Company Number: None

PATIENT
  Age: 90 Year
  Sex: Female
  Weight: 57.1532 kg

DRUGS (2)
  1. FOSAMAX [Suspect]
  2. ACTONEL [Suspect]

REACTIONS (3)
  - PATHOLOGICAL FRACTURE [None]
  - FEMUR FRACTURE [None]
  - FALL [None]
